FAERS Safety Report 15017696 (Version 1)
Quarter: 2018Q2

REPORT INFORMATION
  Report Type: Report from Study
  Country: None (occurrence: US)
  Receive Date: 20180615
  Receipt Date: 20180615
  Transmission Date: 20180711
  Serious: Yes (Other)
  Sender: FDA-Public Use
  Company Number: US-ABBVIE-18K-163-2387917-00

PATIENT
  Sex: Female

DRUGS (3)
  1. HUMIRA [Suspect]
     Active Substance: ADALIMUMAB
     Dosage: DAY 1
     Route: 058
     Dates: start: 201805, end: 201805
  2. HUMIRA [Suspect]
     Active Substance: ADALIMUMAB
     Dosage: DAY 15
     Route: 058
     Dates: start: 201806, end: 201806
  3. HUMIRA [Suspect]
     Active Substance: ADALIMUMAB
     Indication: CROHN^S DISEASE
     Route: 058
     Dates: start: 201801, end: 201803

REACTIONS (7)
  - Anal fissure [Unknown]
  - Arthralgia [Unknown]
  - Procedural pain [Unknown]
  - Fatigue [Unknown]
  - Procedural nausea [Unknown]
  - Flatulence [Unknown]
  - Intestinal resection [Unknown]

NARRATIVE: CASE EVENT DATE: 2018
